FAERS Safety Report 7475495-X (Version None)
Quarter: 2011Q2

REPORT INFORMATION
  Report Type: 
  Country: None (occurrence: None)
  Receive Date: 20110512
  Receipt Date: 20110429
  Transmission Date: 20111010
  Serious: Yes (Other)
  Sender: FDA-Public Use
  Company Number: PHHY2011BR33582

PATIENT
  Sex: Male
  Weight: 120 kg

DRUGS (2)
  1. VENALOT [Suspect]
     Indication: ANTICOAGULANT THERAPY
     Dosage: 1 DF, 1 TABLET IN THE MORNING
     Route: 048
  2. EXFORGE [Suspect]
     Indication: HYPERTENSION
     Dosage: 160 MG VALS AND 5 MG AMLO, 1 TABLET IN THE MORNING
     Route: 048

REACTIONS (5)
  - RETINAL DISORDER [None]
  - VISION BLURRED [None]
  - INTRAOCULAR PRESSURE INCREASED [None]
  - EYE SWELLING [None]
  - OCULAR HYPERAEMIA [None]
